FAERS Safety Report 16300850 (Version 4)
Quarter: 2020Q1

REPORT INFORMATION
  Report Type: Report from Study
  Country: AU (occurrence: AU)
  Receive Date: 20190510
  Receipt Date: 20200124
  Transmission Date: 20200409
  Serious: Yes (Hospitalization)
  Sender: FDA-Public Use
  Company Number: AU-BRISTOL-MYERS SQUIBB COMPANY-BMS-2019-043716

PATIENT
  Age: 51 Year
  Sex: Female
  Weight: 55 kg

DRUGS (18)
  1. NIVOLUMAB [Suspect]
     Active Substance: NIVOLUMAB
     Indication: PRODUCT USED FOR UNKNOWN INDICATION
     Dosage: 1 DOSAGE FORM = 60, Q3WK
     Route: 065
     Dates: start: 20181127, end: 20190124
  2. PREDNISOLONE. [Concomitant]
     Active Substance: PREDNISOLONE
     Indication: PRODUCT USED FOR UNKNOWN INDICATION
     Dosage: 37.5 MILLIGRAM, QD
     Route: 048
     Dates: start: 20190502, end: 20190523
  3. LORATADINE. [Concomitant]
     Active Substance: LORATADINE
     Indication: PROPHYLAXIS
     Dosage: 10 MILLIGRAM, Q3WK
     Route: 048
     Dates: start: 20190411, end: 20190704
  4. RANITIDINE. [Concomitant]
     Active Substance: RANITIDINE
     Indication: PROPHYLAXIS
     Dosage: 150 MILLIGRAM
     Route: 048
     Dates: start: 20190411, end: 20190704
  5. PREDNISOLONE. [Concomitant]
     Active Substance: PREDNISOLONE
     Indication: PRODUCT USED FOR UNKNOWN INDICATION
     Dosage: 50 MILLIGRAM, QD
     Route: 048
     Dates: start: 20190108, end: 20190213
  6. PREDNISOLONE. [Concomitant]
     Active Substance: PREDNISOLONE
     Indication: PRODUCT USED FOR UNKNOWN INDICATION
     Dosage: 25 MILLIGRAM, QD
     Route: 048
     Dates: start: 20190523, end: 20190704
  7. PREDNISOLONE. [Concomitant]
     Active Substance: PREDNISOLONE
     Indication: PRODUCT USED FOR UNKNOWN INDICATION
     Dosage: 12.5 MILLIGRAM, QD
     Route: 048
     Dates: start: 20190704
  8. BETAMETHASONE DIPROPIONATE. [Concomitant]
     Active Substance: BETAMETHASONE DIPROPIONATE
     Indication: HAND DERMATITIS
     Dosage: 1 DOSAGE FORM = 1 APPLICATION, BID
     Route: 061
  9. MONOFEME [Concomitant]
     Active Substance: ETHINYL ESTRADIOL\LEVONORGESTREL
     Indication: CONTRACEPTION
     Dosage: 1 TAB, QD
     Route: 048
  10. AKYNZEO [Concomitant]
     Active Substance: NETUPITANT\PALONOSETRON HYDROCHLORIDE
     Indication: PROPHYLAXIS
     Dosage: 1 TAB, Q3WK
     Route: 048
     Dates: start: 20190321, end: 20190704
  11. DEXAMETHASONE. [Concomitant]
     Active Substance: DEXAMETHASONE
     Indication: PROPHYLAXIS
     Dosage: 20 MILLIGRAM, Q3WK
     Route: 042
     Dates: start: 20190321, end: 20190704
  12. MOMETASONE [Concomitant]
     Active Substance: MOMETASONE
     Indication: HAND DERMATITIS
     Dosage: 1 DOSAGE FORM = 1 APPLICATION, QD
     Route: 061
  13. CARBIMAZOLE [Concomitant]
     Active Substance: CARBIMAZOLE
     Indication: PRODUCT USED FOR UNKNOWN INDICATION
     Dosage: 10 MILLIGRAM, BID
     Route: 048
     Dates: start: 20190108, end: 20190412
  14. DEXAMETHASONE. [Concomitant]
     Active Substance: DEXAMETHASONE
     Indication: PROPHYLAXIS
     Dosage: 8 MILLIGRAM, PER NEEDED
     Route: 048
     Dates: start: 20190321, end: 20190704
  15. PREDNISOLONE. [Concomitant]
     Active Substance: PREDNISOLONE
     Indication: PRODUCT USED FOR UNKNOWN INDICATION
     Dosage: 50 MILLIGRAM, QD
     Route: 048
     Dates: start: 20190412, end: 20190502
  16. IPILIMUMAB [Suspect]
     Active Substance: IPILIMUMAB
     Indication: PRODUCT USED FOR UNKNOWN INDICATION
     Dosage: 1 DOSAGE FORM =170, Q3WK
     Route: 042
     Dates: start: 20181127, end: 20190124
  17. CANDESAN [Concomitant]
     Indication: HYPERTENSION
     Dosage: 8 MILLIGRAM, QD
     Route: 048
  18. FLUTICASONE;SALMETEROL [Concomitant]
     Active Substance: FLUTICASONE PROPIONATE\SALMETEROL XINAFOATE
     Indication: ASTHMA
     Dosage: 1 DOSAGE FORM =1 INHALATION, BID
     Route: 048
     Dates: start: 2002

REACTIONS (1)
  - Lymphadenitis [Recovered/Resolved]

NARRATIVE: CASE EVENT DATE: 20190212
